FAERS Safety Report 8311392-5 (Version None)
Quarter: 2012Q2

REPORT INFORMATION
  Report Type: 
  Country: None (occurrence: None)
  Receive Date: 20120425
  Receipt Date: 20110601
  Transmission Date: 20120825
  Serious: No
  Sender: FDA-Public Use
  Company Number: US-MYLANLABS-2011S1011329

PATIENT
  Age: 68 Year
  Sex: Male
  Weight: 85.73 kg

DRUGS (7)
  1. ASPIRIN [Concomitant]
     Dates: start: 20110501
  2. NORVASC [Concomitant]
  3. FLOVENT [Suspect]
     Indication: CHRONIC OBSTRUCTIVE PULMONARY DISEASE
     Route: 055
     Dates: start: 20100101, end: 20110501
  4. PLAVIX [Concomitant]
     Dates: start: 20110501
  5. DILTIAZEM HCL [Concomitant]
  6. VENTOLIN [Concomitant]
  7. DUONEB [Suspect]
     Indication: CHRONIC OBSTRUCTIVE PULMONARY DISEASE
     Route: 055
     Dates: start: 20100101

REACTIONS (3)
  - CONTUSION [None]
  - SKIN ATROPHY [None]
  - SKIN HAEMORRHAGE [None]
